FAERS Safety Report 20700436 (Version 1)
Quarter: 2022Q2

REPORT INFORMATION
  Report Type: Spontaneous
  Country: JP (occurrence: JP)
  Receive Date: 20220412
  Receipt Date: 20220412
  Transmission Date: 20220721
  Serious: Yes (Hospitalization, Other)
  Sender: FDA-Public Use
  Company Number: JP-PFIZER INC-202200528539

PATIENT
  Age: 8 Decade
  Sex: Female

DRUGS (1)
  1. PREGABALIN [Suspect]
     Active Substance: PREGABALIN
     Dosage: 2350 MG
     Route: 048

REACTIONS (3)
  - Overdose [Unknown]
  - Poisoning [Unknown]
  - Altered state of consciousness [Unknown]
